FAERS Safety Report 17242418 (Version 1)
Quarter: 2020Q1

REPORT INFORMATION
  Report Type: Spontaneous
  Country: FR (occurrence: FR)
  Receive Date: 20200107
  Receipt Date: 20200107
  Transmission Date: 20200409
  Serious: Yes (Hospitalization)
  Sender: FDA-Public Use
  Company Number: FR-MYLANLABS-2020M1001173

PATIENT
  Age: 74 Year
  Sex: Female
  Weight: 75.6 kg

DRUGS (7)
  1. LERCANIDIPINE [Concomitant]
     Active Substance: LERCANIDIPINE
     Dosage: UNK
  2. BISOCE [Concomitant]
     Active Substance: BISOPROLOL
     Dosage: UNK
  3. LANSOPRAZOLE. [Concomitant]
     Active Substance: LANSOPRAZOLE
     Dosage: UNK
  4. CLAMOXYL                           /00249602/ [Suspect]
     Active Substance: AMOXICILLIN
     Indication: URINARY TRACT INFECTION
     Dosage: 3 DOSAGE FORM, QD
     Route: 048
     Dates: start: 20190821, end: 20190826
  5. PERINDOPRIL [Concomitant]
     Active Substance: PERINDOPRIL
     Dosage: UNK
  6. CLOMIPRAMINE MYLAN 75 MG, COMPRIM? PELLICUL? S?CABLE [Suspect]
     Active Substance: CLOMIPRAMINE
     Indication: DEPRESSION
     Dosage: 1 DOSAGE FORM, QD
     Route: 048
     Dates: start: 20190809, end: 20190829
  7. ELIQUIS [Concomitant]
     Active Substance: APIXABAN
     Dosage: UNK

REACTIONS (2)
  - Cholestasis [Recovering/Resolving]
  - Hyperlipasaemia [Recovered/Resolved with Sequelae]

NARRATIVE: CASE EVENT DATE: 20190826
